FAERS Safety Report 21992216 (Version 1)
Quarter: 2023Q1

REPORT INFORMATION
  Report Type: Spontaneous
  Country: JP (occurrence: JP)
  Receive Date: 20230214
  Receipt Date: 20230214
  Transmission Date: 20230417
  Serious: Yes (Death, Other)
  Sender: FDA-Public Use
  Company Number: JP-SUN PHARMACEUTICAL INDUSTRIES LTD-2023RR-377398

PATIENT
  Age: 35 Year
  Sex: Male

DRUGS (13)
  1. GEMCITABINE [Suspect]
     Active Substance: GEMCITABINE
     Indication: Hodgkin^s disease nodular sclerosis
     Dosage: UNK
     Route: 065
  2. PREDNISOLONE [Suspect]
     Active Substance: PREDNISOLONE
     Indication: Vanishing bile duct syndrome
     Dosage: 100 MILLIGRAM, DAILY, DAY 1-5
     Route: 065
  3. METHYLPREDNISOLONE [Suspect]
     Active Substance: METHYLPREDNISOLONE
     Indication: Lymphoma
     Dosage: 500 MILLIGRAM, DAILY, 3 DAYS
     Route: 065
  4. METHYLPREDNISOLONE [Suspect]
     Active Substance: METHYLPREDNISOLONE
     Dosage: 500 MILLIGRAM, DAILY, DAYS 1-5
     Route: 065
  5. CARBOPLATIN [Suspect]
     Active Substance: CARBOPLATIN
     Indication: Vanishing bile duct syndrome
     Dosage: 300 MILLIGRAM/SQ. METER, DAY 1
     Route: 065
  6. CARBOPLATIN [Suspect]
     Active Substance: CARBOPLATIN
     Dosage: AUC=1.25 DAYS 1-4
     Route: 065
  7. DEXAMETHASONE [Suspect]
     Active Substance: DEXAMETHASONE
     Indication: Vanishing bile duct syndrome
     Dosage: 39.6 MILLIGRAM, DAILY, DAYS 1-3
     Route: 065
  8. URSODIOL [Suspect]
     Active Substance: URSODIOL
     Indication: Lymphoma
     Dosage: UNK
     Route: 065
  9. DOXORUBICIN [Suspect]
     Active Substance: DOXORUBICIN
     Indication: Vanishing bile duct syndrome
     Dosage: 12.5 MILLIGRAM/SQ. METER
     Route: 065
  10. IFOSFAMIDE [Suspect]
     Active Substance: IFOSFAMIDE
     Indication: Vanishing bile duct syndrome
     Dosage: 1500 MILLIGRAM/SQ. METER, DAYS 1-3
     Route: 065
  11. CYCLOPHOSPHAMIDE [Suspect]
     Active Substance: CYCLOPHOSPHAMIDE
     Indication: Vanishing bile duct syndrome
     Dosage: 560 MILLIGRAM/SQ. METER, DAILY
     Route: 065
  12. ETOPOSIDE [Suspect]
     Active Substance: ETOPOSIDE
     Indication: Vanishing bile duct syndrome
     Dosage: 40 MILLIGRAM/SQ. METER, DAYS 1-4
     Route: 065
  13. CYTARABINE [Suspect]
     Active Substance: CYTARABINE
     Indication: Vanishing bile duct syndrome
     Dosage: 2000 MILLIGRAM/SQ. METER, DAY 5
     Route: 065

REACTIONS (2)
  - Disease progression [Fatal]
  - Drug ineffective [Unknown]
